FAERS Safety Report 14739043 (Version 3)
Quarter: 2018Q4

REPORT INFORMATION
  Report Type: Spontaneous
  Country: IT (occurrence: IT)
  Receive Date: 20180410
  Receipt Date: 20181121
  Transmission Date: 20190204
  Serious: Yes (Hospitalization)
  Sender: FDA-Public Use
  Company Number: IT-ROCHE-2100570

PATIENT
  Age: 33 Year
  Sex: Female

DRUGS (4)
  1. DELTACORTENE [Concomitant]
     Active Substance: PREDNISONE
  2. PROGRAF [Concomitant]
     Active Substance: TACROLIMUS\TACROLIMUS ANHYDROUS
  3. FOLINA (ITALY) [Concomitant]
  4. CELLCEPT [Suspect]
     Active Substance: MYCOPHENOLATE MOFETIL\MYCOPHENOLATE MOFETIL HYDROCHLORIDE
     Indication: PROPHYLAXIS AGAINST TRANSPLANT REJECTION
     Route: 048
     Dates: start: 20170101, end: 20170715

REACTIONS (3)
  - Pyrexia [Unknown]
  - Renal graft infection [Unknown]
  - Flank pain [Unknown]

NARRATIVE: CASE EVENT DATE: 20170715
